FAERS Safety Report 7743150-4 (Version None)
Quarter: 2011Q3

REPORT INFORMATION
  Report Type: 
  Country: None (occurrence: None)
  Receive Date: 20110825
  Receipt Date: 20110815
  Transmission Date: 20111222
  Serious: Yes (Hospitalization)
  Sender: FDA-Public Use
  Company Number: A0941382A

PATIENT
  Age: 38 Year
  Sex: Female

DRUGS (1)
  1. ASPIRIN + CAFFEINE + PARACETAMOL (FORMULATION UNKNOWN) 	(ACETAMINOPHEN [Suspect]
     Indication: HEADACHE

REACTIONS (7)
  - DRUG ADMINISTRATION ERROR [None]
  - GASTROINTESTINAL MOTILITY DISORDER [None]
  - GASTROINTESTINAL HAEMORRHAGE [None]
  - GASTROENTERITIS VIRAL [None]
  - PYLORIC STENOSIS [None]
  - GASTRIC DISORDER [None]
  - DRUG INEFFECTIVE [None]
